FAERS Safety Report 9437481 (Version 1)
Quarter: 2013Q3

REPORT INFORMATION
  Report Type: Spontaneous
  Country: US (occurrence: US)
  Receive Date: 20130802
  Receipt Date: 20130802
  Transmission Date: 20140515
  Serious: Yes (Hospitalization, Other)
  Sender: FDA-Public Use
  Company Number: US-PFIZER INC-2013225294

PATIENT
  Age: 92 Year
  Sex: Female
  Weight: 52.15 kg

DRUGS (4)
  1. LIPITOR [Suspect]
     Dosage: UNK
  2. CARDURA [Suspect]
     Dosage: 8 MG, UNK
  3. XALATAN [Suspect]
     Dosage: UNK
  4. PROCARDIA XL [Suspect]
     Dosage: UNK
     Dates: end: 201304

REACTIONS (4)
  - Accident [Unknown]
  - Fall [Unknown]
  - Lower limb fracture [Unknown]
  - Cardiac failure congestive [Unknown]
